FAERS Safety Report 8393483-6 (Version None)
Quarter: 2012Q2

REPORT INFORMATION
  Report Type: 
  Country: None (occurrence: None)
  Receive Date: 20120529
  Receipt Date: 20120516
  Transmission Date: 20120825
  Serious: Yes (Other)
  Sender: FDA-Public Use
  Company Number: US-ELI_LILLY_AND_COMPANY-US201205005614

PATIENT
  Sex: Female
  Weight: 82.54 kg

DRUGS (5)
  1. LANTUS [Concomitant]
     Indication: INSULIN-REQUIRING TYPE 2 DIABETES MELLITUS
     Dosage: 36 U, EACH EVENING
     Route: 058
     Dates: end: 20120419
  2. LANTUS [Concomitant]
     Dosage: 18 U, EACH EVENING
     Route: 058
     Dates: start: 20120420, end: 20120502
  3. BYDUREON [Suspect]
     Indication: INSULIN-REQUIRING TYPE 2 DIABETES MELLITUS
     Dosage: 2 MG, WEEKLY (1/W)
     Route: 058
     Dates: start: 20120420, end: 20120503
  4. LANTUS [Concomitant]
     Dosage: 36 U, EACH EVENING
     Route: 058
     Dates: start: 20120503
  5. METFORMIN HCL [Concomitant]
     Indication: INSULIN-REQUIRING TYPE 2 DIABETES MELLITUS
     Dosage: 500 MG, BID
     Route: 048
     Dates: start: 20120420, end: 20120502

REACTIONS (10)
  - HYPERSENSITIVITY [None]
  - PRURITUS [None]
  - SKIN BURNING SENSATION [None]
  - OEDEMA PERIPHERAL [None]
  - DIARRHOEA [None]
  - NAUSEA [None]
  - BLOOD GLUCOSE INCREASED [None]
  - INJECTION SITE NODULE [None]
  - URTICARIA [None]
  - OFF LABEL USE [None]
